FAERS Safety Report 14525730 (Version 1)
Quarter: 2018Q1

REPORT INFORMATION
  Report Type: Report from Study
  Country: IN (occurrence: IN)
  Receive Date: 20180213
  Receipt Date: 20180213
  Transmission Date: 20180509
  Serious: Yes (Death, Hospitalization, Other)
  Sender: FDA-Public Use
  Company Number: IN-BAYER-2017-067672

PATIENT
  Age: 72 Year
  Sex: Male

DRUGS (3)
  1. NEXAVAR [Suspect]
     Active Substance: SORAFENIB
     Indication: HEPATOCELLULAR CARCINOMA
     Dosage: DAILY DOSE 400 MG
     Route: 048
     Dates: start: 20170202, end: 201702
  2. NEXAVAR [Suspect]
     Active Substance: SORAFENIB
     Indication: HEPATOCELLULAR CARCINOMA
     Dosage: 5 DAYS IN A WEEK (SATURDAY AND SUNDAY OFF)
     Route: 048
     Dates: start: 2017
  3. NEXAVAR [Suspect]
     Active Substance: SORAFENIB
     Indication: HEPATOCELLULAR CARCINOMA
     Dosage: UNK
     Route: 048
     Dates: start: 201702, end: 2017

REACTIONS (22)
  - Metastases to lung [None]
  - Vomiting [Recovered/Resolved]
  - Rash [None]
  - Diarrhoea [None]
  - Asthenia [None]
  - Metastases to kidney [None]
  - Oral infection [None]
  - Hepatocellular carcinoma [Fatal]
  - Platelet count decreased [Not Recovered/Not Resolved]
  - Rash [None]
  - Renal failure [Fatal]
  - Ascites [None]
  - Alopecia [None]
  - Gastrointestinal disorder [None]
  - Ulcer [None]
  - Therapy non-responder [None]
  - Mouth ulceration [None]
  - Intra-abdominal fluid collection [None]
  - Dyspepsia [Not Recovered/Not Resolved]
  - Skin exfoliation [None]
  - Product contamination [None]
  - Pain [None]

NARRATIVE: CASE EVENT DATE: 2017
